FAERS Safety Report 10456243 (Version 1)
Quarter: 2014Q3

REPORT INFORMATION
  Report Type: Report from Study
  Country: IR (occurrence: IR)
  Receive Date: 20140916
  Receipt Date: 20140916
  Transmission Date: 20150326
  Serious: Yes (Death, Other)
  Sender: FDA-Public Use
  Company Number: IR-JNJFOC-20140911355

PATIENT

DRUGS (5)
  1. TRAMADOL HYDROCHLORIDE. [Suspect]
     Active Substance: TRAMADOL HYDROCHLORIDE
     Indication: PRODUCT USED FOR UNKNOWN INDICATION
     Route: 065
  2. HEPARIN [Suspect]
     Active Substance: HEPARIN SODIUM
     Indication: PRODUCT USED FOR UNKNOWN INDICATION
     Route: 065
  3. ALUMINIUM PHOSPHATE [Suspect]
     Active Substance: ALUMINUM PHOSPHATE
     Indication: PRODUCT USED FOR UNKNOWN INDICATION
     Route: 065
  4. METHADONE [Suspect]
     Active Substance: METHADONE HYDROCHLORIDE
     Indication: PRODUCT USED FOR UNKNOWN INDICATION
     Route: 065
  5. OPIOIDS [Suspect]
     Active Substance: UNSPECIFIED INGREDIENT
     Indication: PRODUCT USED FOR UNKNOWN INDICATION
     Route: 065

REACTIONS (19)
  - QRS axis abnormal [Unknown]
  - Pneumonia aspiration [Unknown]
  - Rhabdomyolysis [Unknown]
  - Atrioventricular block complete [Unknown]
  - Death [Fatal]
  - Renal failure acute [Unknown]
  - Endotracheal intubation [Unknown]
  - Convulsion [Unknown]
  - Deep vein thrombosis [Unknown]
  - Acute respiratory distress syndrome [Unknown]
  - Hypotension [Unknown]
  - Electrocardiogram change [Unknown]
  - Brain oedema [Unknown]
  - Liver function test abnormal [Unknown]
  - Ventricular extrasystoles [Unknown]
  - Heparin-induced thrombocytopenia [Unknown]
  - Putamen haemorrhage [Unknown]
  - Atrial fibrillation [Unknown]
  - Arrhythmia [Unknown]
